FAERS Safety Report 16082391 (Version 2)
Quarter: 2019Q1

REPORT INFORMATION
  Report Type: Spontaneous
  Country: JP (occurrence: JP)
  Receive Date: 20190318
  Receipt Date: 20190318
  Transmission Date: 20190418
  Serious: Yes (Hospitalization, Other)
  Sender: FDA-Public Use
  Company Number: JP-MALLINCKRODT-T201501000

PATIENT
  Age: 39 Year
  Sex: Female
  Weight: 62 kg

DRUGS (19)
  1. METHADONE [Suspect]
     Active Substance: METHADONE HYDROCHLORIDE
     Indication: CANCER PAIN
     Dosage: 10 MG, TID
     Route: 048
     Dates: start: 20150114, end: 20150122
  2. ANAPEINE [Concomitant]
     Active Substance: ROPIVACAINE HYDROCHLORIDE
     Indication: ANALGESIC THERAPY
     Dosage: 24 MG, UNK
     Route: 008
     Dates: start: 20150119, end: 20150122
  3. OXINORM [Concomitant]
     Indication: PRODUCT USED FOR UNKNOWN INDICATION
     Dosage: 20 MG, PRN
     Route: 048
     Dates: start: 20150114
  4. BIO-THREE [Concomitant]
     Active Substance: HERBALS
     Indication: PRODUCT USED FOR UNKNOWN INDICATION
     Dosage: 3 DF, UNK
     Route: 048
     Dates: start: 20150119, end: 20150127
  5. RANMARK [Concomitant]
     Active Substance: DENOSUMAB
     Indication: METASTASES TO BONE
     Dosage: 120 MG, UNK
     Route: 051
     Dates: start: 20150125, end: 20150125
  6. ESTRANA [Concomitant]
     Active Substance: ESTRADIOL
     Indication: HORMONE THERAPY
     Dosage: 1 DF, UNK
     Route: 062
  7. MAGMITT [Concomitant]
     Active Substance: MAGNESIUM OXIDE
     Indication: CONSTIPATION
     Dosage: 2250 MG, UNK
     Route: 048
     Dates: start: 20150119, end: 20150127
  8. LANSOPRAZOLE. [Concomitant]
     Active Substance: LANSOPRAZOLE
     Indication: GASTRITIS
     Dosage: 15 MG, UNK
     Route: 048
     Dates: start: 20150119, end: 20150127
  9. PRIMPERAN [Concomitant]
     Active Substance: METOCLOPRAMIDE HYDROCHLORIDE
     Indication: NAUSEA
     Dosage: 10 MG, UNK
     Route: 051
     Dates: start: 20150125, end: 20150125
  10. ROPION [Concomitant]
     Active Substance: FLURBIPROFEN AXETIL
     Indication: ANALGESIC THERAPY
     Dosage: 50 MG, UNK
     Route: 051
     Dates: start: 20150125, end: 20150209
  11. LYRICA [Concomitant]
     Active Substance: PREGABALIN
     Indication: ANALGESIC THERAPY
     Dosage: 450 MG, UNK
     Route: 048
     Dates: start: 20141216, end: 20150127
  12. BETAMETHASONE. [Concomitant]
     Active Substance: BETAMETHASONE
     Indication: ANALGESIC THERAPY
     Dosage: 4 MG, UNK
     Route: 048
     Dates: start: 20140930, end: 20150127
  13. METHADONE [Suspect]
     Active Substance: METHADONE HYDROCHLORIDE
     Dosage: 10 MG, BID
     Route: 048
     Dates: start: 20150123, end: 20150126
  14. FUROSEMIDE. [Concomitant]
     Active Substance: FUROSEMIDE
     Indication: DIURETIC THERAPY
     Dosage: 20 MG, UNK
     Route: 048
     Dates: start: 20150119, end: 20150127
  15. PROVERA [Concomitant]
     Active Substance: MEDROXYPROGESTERONE ACETATE
     Indication: HORMONE THERAPY
     Dosage: 5 MG, UNK
     Route: 048
     Dates: start: 20150105, end: 20150117
  16. CELECOX [Concomitant]
     Active Substance: CELECOXIB
     Indication: ANALGESIC THERAPY
     Dosage: 400 MG, UNK
     Route: 048
     Dates: end: 20150127
  17. DEPAKENE-R [Concomitant]
     Active Substance: VALPROATE SODIUM
     Indication: SEIZURE
     Dosage: 800 MG, UNK
     Route: 048
     Dates: start: 20141002, end: 20150127
  18. SPIRONOLACTONE. [Concomitant]
     Active Substance: SPIRONOLACTONE
     Indication: DIURETIC THERAPY
     Dosage: 25 MG, UNK
     Route: 048
     Dates: start: 20150119, end: 20150127
  19. FENTANYL. [Concomitant]
     Active Substance: FENTANYL
     Indication: PRODUCT USED FOR UNKNOWN INDICATION
     Dosage: 0.08 MG, PRN
     Route: 051
     Dates: start: 20150113

REACTIONS (4)
  - Condition aggravated [Unknown]
  - Somnolence [Recovered/Resolved]
  - Rectal cancer [Unknown]
  - Tinnitus [Recovered/Resolved]

NARRATIVE: CASE EVENT DATE: 20150119
